FAERS Safety Report 10333753 (Version 2)
Quarter: 2014Q3

REPORT INFORMATION
  Report Type: Spontaneous
  Country: US (occurrence: US)
  Receive Date: 20140723
  Receipt Date: 20140723
  Transmission Date: 20150326
  Serious: No
  Sender: FDA-Public Use
  Company Number: US-UNITED THERAPEUTICS-UTC-047897

PATIENT
  Sex: Female
  Weight: 118.82 kg

DRUGS (3)
  1. ADCIRCA [Concomitant]
     Active Substance: TADALAFIL
  2. REMODULIN [Suspect]
     Active Substance: TREPROSTINIL
     Dosage: 0.00125 ?G/KG/MIN, CONTINUING
     Route: 058
     Dates: start: 20140414
  3. TYVASO [Suspect]
     Active Substance: TREPROSTINIL
     Indication: PULMONARY ARTERIAL HYPERTENSION
     Dosage: 18-54 ?G, QID
     Dates: start: 20140109

REACTIONS (7)
  - Vomiting [Unknown]
  - Infusion site erythema [Unknown]
  - Nausea [Unknown]
  - Infusion site pruritus [Unknown]
  - Pain in extremity [Unknown]
  - Faecal incontinence [Unknown]
  - Infusion site irritation [Unknown]
